FAERS Safety Report 7801410-2 (Version None)
Quarter: 2011Q4

REPORT INFORMATION
  Report Type: 
  Country: None (occurrence: None)
  Receive Date: 20111006
  Receipt Date: 20111006
  Transmission Date: 20120403
  Serious: Yes (Hospitalization)
  Sender: FDA-Public Use
  Company Number: None

PATIENT
  Age: 78 Year
  Sex: Female
  Weight: 47.6277 kg

DRUGS (8)
  1. METOPROLOL TARTRATE [Concomitant]
  2. LIPITOR [Concomitant]
  3. SOTALOL HCL [Concomitant]
  4. ENALAPRIL MALEATE [Suspect]
     Indication: HYPERTENSION
     Dosage: 20MG BID PO CHRONIC
     Route: 048
  5. ALDACTAZIDE [Suspect]
     Indication: HYPERTENSION
     Dosage: 25/25 X 2 BID PO CHRONIC
     Route: 048
  6. GLYBURIDE [Concomitant]
  7. COUMADIN [Concomitant]
  8. ASPIRIN [Concomitant]

REACTIONS (3)
  - MUSCULAR WEAKNESS [None]
  - PAIN [None]
  - HYPERKALAEMIA [None]
